FAERS Safety Report 16397805 (Version 1)
Quarter: 2019Q2

REPORT INFORMATION
  Report Type: Spontaneous
  Country: US (occurrence: US)
  Receive Date: 20190606
  Receipt Date: 20190606
  Transmission Date: 20190711
  Serious: No
  Sender: FDA-Public Use
  Company Number: US-JNJFOC-20190522828

PATIENT
  Sex: Male

DRUGS (2)
  1. TYLENOL EXTRA STRENGTH [Suspect]
     Active Substance: ACETAMINOPHEN
     Indication: HEADACHE
     Dosage: TWO 500 MG PILLS EVERY NIGHT, AS WELL AS OCCASIONALLY DURING DAY
     Route: 048
  2. TYLENOL EXTRA STRENGTH [Suspect]
     Active Substance: ACETAMINOPHEN
     Indication: PAIN
     Dosage: TWO 500 MG PILLS EVERY NIGHT, AS WELL AS OCCASIONALLY DURING DAY
     Route: 048

REACTIONS (2)
  - Migraine [Recovered/Resolved]
  - Overdose [Unknown]
